FAERS Safety Report 5528668-7 (Version None)
Quarter: 2007Q4

REPORT INFORMATION
  Report Type: 
  Country: None (occurrence: None)
  Receive Date: 20071115
  Receipt Date: 20070122
  Transmission Date: 20080405
  Serious: No
  Sender: FDA-Public Use
  Company Number: 07H-163-0311849-00

PATIENT
  Age: 58 Year
  Sex: Male
  Weight: 138 kg

DRUGS (1)
  1. DOBUTAMINE IN DEXTROSE 5% [Suspect]
     Indication: CARDIAC STRESS TEST
     Dosage: 10 MCG/KG/MIN-PEAK OF 20 MCG/KG, TITRATE, INTRAVENOUS
     Route: 042
     Dates: start: 20070119

REACTIONS (1)
  - BLOOD PRESSURE INCREASED [None]
